FAERS Safety Report 16691048 (Version 1)
Quarter: 2019Q3

REPORT INFORMATION
  Report Type: Spontaneous
  Country: IT (occurrence: IT)
  Receive Date: 20190812
  Receipt Date: 20190812
  Transmission Date: 20191004
  Serious: Yes (Other)
  Sender: FDA-Public Use
  Company Number: IT-SUN PHARMACEUTICAL INDUSTRIES LTD-2019RR-217140

PATIENT
  Age: 43 Year

DRUGS (11)
  1. GEMCITABINE. [Suspect]
     Active Substance: GEMCITABINE
     Indication: PRODUCT USED FOR UNKNOWN INDICATION
     Dosage: 10000 MG/M^2 (6 CYCLES)
     Route: 065
     Dates: start: 201504
  2. CISPLATIN. [Suspect]
     Active Substance: CISPLATIN
     Indication: PRODUCT USED FOR UNKNOWN INDICATION
     Dosage: [CDDP] 177 MG
     Route: 065
  3. CARBOPLATIN. [Suspect]
     Active Substance: CARBOPLATIN
     Dosage: CARBOPLATIN AUC 5 (4 CYCLES)
     Route: 065
     Dates: start: 20170206, end: 20170511
  4. CARBOPLATIN. [Suspect]
     Active Substance: CARBOPLATIN
     Indication: PRODUCT USED FOR UNKNOWN INDICATION
     Dosage: THREE CYCLES OF CHEMOTHERAPY
     Route: 065
  5. CARBOPLATIN. [Suspect]
     Active Substance: CARBOPLATIN
     Dosage: CARBOPLATIN AUC 6 (3 CYCLES)
     Route: 065
     Dates: start: 20140326, end: 20140416
  6. CARBOPLATIN. [Suspect]
     Active Substance: CARBOPLATIN
     Dosage: CARBOPLATIN AUC 4; DAYS 1 AND 21 (6 CYCLES)
     Route: 065
     Dates: start: 201504
  7. PACLITAXEL. [Suspect]
     Active Substance: PACLITAXEL
     Dosage: 175 MG/M^2 (4 CYCLES)
     Route: 065
     Dates: start: 20170206, end: 20170511
  8. PACLITAXEL. [Suspect]
     Active Substance: PACLITAXEL
     Indication: PRODUCT USED FOR UNKNOWN INDICATION
     Dosage: 3 CYCLES
     Route: 065
  9. BEVACIZUMAB. [Suspect]
     Active Substance: BEVACIZUMAB
     Indication: PRODUCT USED FOR UNKNOWN INDICATION
     Dosage: 15 MG/KG (6 CYCLES)
     Route: 065
     Dates: start: 201504
  10. PACLITAXEL. [Suspect]
     Active Substance: PACLITAXEL
     Dosage: 175 MG/M^2 (3 CYCLES)
     Route: 065
     Dates: start: 20140326, end: 20140416
  11. PACLITAXEL. [Suspect]
     Active Substance: PACLITAXEL
     Dosage: 310 MG AT 42.5 DEGREES C FOR 90 MIN
     Route: 065

REACTIONS (4)
  - Febrile neutropenia [Unknown]
  - Lymphadenopathy [Unknown]
  - Disease progression [Unknown]
  - Neuropathy peripheral [Unknown]
